FAERS Safety Report 5064871-0 (Version None)
Quarter: 2006Q3

REPORT INFORMATION
  Report Type: 
  Country: None (occurrence: None)
  Receive Date: 20060725
  Receipt Date: 20060706
  Transmission Date: 20061208
  Serious: Yes (Hospitalization)
  Sender: FDA-Public Use
  Company Number: US200607001168

PATIENT
  Age: 74 Year
  Sex: Female

DRUGS (2)
  1. FORTEO [Suspect]
     Indication: OSTEOPOROSIS
     Dates: start: 20040101
  2. FORTEO PEN (FORTEO PEN) [Concomitant]

REACTIONS (5)
  - CHOLECYSTECTOMY [None]
  - GALLBLADDER OPERATION [None]
  - HERNIA REPAIR [None]
  - INTERVERTEBRAL DISC DISORDER [None]
  - PHARMACEUTICAL PRODUCT COMPLAINT [None]
